FAERS Safety Report 5194018-1 (Version None)
Quarter: 2006Q4

REPORT INFORMATION
  Report Type: 
  Country: None (occurrence: None)
  Receive Date: 20061222
  Receipt Date: 20061207
  Transmission Date: 20070319
  Serious: Yes (Hospitalization, Other)
  Sender: FDA-Public Use
  Company Number: 012734

PATIENT
  Sex: Male

DRUGS (4)
  1. PRIALT [Suspect]
     Indication: NEURALGIA
     Dosage: 0.05 + 0.02 UG, ONCE/HOUR, INTRATHECAL - SEE IMAGE
     Route: 037
     Dates: start: 20061206, end: 20061206
  2. PRIALT [Suspect]
     Indication: NEURALGIA
     Dosage: 0.05 + 0.02 UG, ONCE/HOUR, INTRATHECAL - SEE IMAGE
     Route: 037
     Dates: start: 20061206
  3. BACLOFEN [Concomitant]
  4. BUPIVACAINE [Concomitant]

REACTIONS (10)
  - ASTHENIA [None]
  - AUTONOMIC NERVOUS SYSTEM IMBALANCE [None]
  - CHEST PAIN [None]
  - DIARRHOEA [None]
  - HYPERHIDROSIS [None]
  - HYPERTENSION [None]
  - MUSCLE SPASMS [None]
  - MYOCLONUS [None]
  - PAIN [None]
  - TACHYCARDIA [None]
